FAERS Safety Report 24005688 (Version 1)
Quarter: 2024Q2

REPORT INFORMATION
  Report Type: Spontaneous
  Country: US (occurrence: None)
  Receive Date: 20240622
  Receipt Date: 20240622
  Transmission Date: 20240715
  Serious: Yes (Hospitalization)
  Sender: FDA-Public Use
  Company Number: None

PATIENT
  Age: 79 Year
  Sex: Male

DRUGS (2)
  1. CODEINE\GUAIFENESIN [Suspect]
     Active Substance: CODEINE\GUAIFENESIN
     Indication: Cough
     Dosage: 5 ML PRN PO?
     Route: 048
     Dates: start: 20240531, end: 20240531
  2. ZOLPIDEM TARTRATE [Suspect]
     Active Substance: ZOLPIDEM TARTRATE
     Indication: Insomnia
     Dosage: 5 MG AT BEDTIME PO?
     Route: 048
     Dates: start: 20240313, end: 20240602

REACTIONS (1)
  - Myoclonus [None]

NARRATIVE: CASE EVENT DATE: 20240603
